FAERS Safety Report 24843881 (Version 1)
Quarter: 2025Q1

REPORT INFORMATION
  Report Type: Spontaneous
  Country: AT (occurrence: AT)
  Receive Date: 20250115
  Receipt Date: 20250115
  Transmission Date: 20250408
  Serious: Yes (Other)
  Sender: BRISTOL-MYERS SQUIBB COMPANY
  Company Number: AT-BRISTOL-MYERS SQUIBB COMPANY-2025-004851

PATIENT
  Age: 61 Year
  Sex: Male

DRUGS (1)
  1. KRAZATI [Suspect]
     Active Substance: ADAGRASIB
     Indication: Product used for unknown indication
     Dates: start: 20241219, end: 20250103

REACTIONS (3)
  - Prerenal failure [Recovering/Resolving]
  - Diarrhoea [Unknown]
  - Dehydration [Unknown]
